FAERS Safety Report 4535743-2 (Version None)
Quarter: 2004Q4

REPORT INFORMATION
  Report Type: 
  Country: None (occurrence: None)
  Receive Date: 20041223
  Receipt Date: 20040127
  Transmission Date: 20050328
  Serious: No
  Sender: FDA-Public Use
  Company Number: US-GLAXOSMITHKLINE-A0496298A

PATIENT
  Age: 61 Year
  Sex: Female

DRUGS (4)
  1. FLONASE [Suspect]
     Dosage: 2SPR TWICE PER DAY
     Route: 045
     Dates: start: 20030101
  2. SINGULAIR [Concomitant]
  3. ADVAIR DISKUS 100/50 [Concomitant]
  4. PULMICORT [Concomitant]

REACTIONS (2)
  - NASAL DISCOMFORT [None]
  - PHARMACEUTICAL PRODUCT COMPLAINT [None]
